FAERS Safety Report 15698241 (Version 1)
Quarter: 2018Q4

REPORT INFORMATION
  Report Type: Spontaneous
  Country: US (occurrence: US)
  Receive Date: 20181126
  Receipt Date: 20181126
  Transmission Date: 20190205
  Serious: Yes (Other)
  Sender: FDA-Public Use
  Company Number: None

PATIENT
  Age: 57 Year
  Sex: Female
  Weight: 70.31 kg

DRUGS (9)
  1. MAGNESIUM [Concomitant]
     Active Substance: MAGNESIUM
  2. VITAMIN E [Concomitant]
     Active Substance: .ALPHA.-TOCOPHEROL
  3. VITAMIN C [Concomitant]
     Active Substance: ASCORBIC ACID
  4. GEODON (ZIPRASIDONE) [Concomitant]
  5. ECHINACEA [Concomitant]
     Active Substance: ECHINACEA, UNSPECIFIED
  6. VIT B COMPLEX [Concomitant]
  7. FISH OIL [Concomitant]
     Active Substance: FISH OIL
  8. ZINC. [Concomitant]
     Active Substance: ZINC
  9. SULFAMETHOXAZOLE/TRIMETHOPRIM DS [Suspect]
     Active Substance: SULFAMETHOXAZOLE\TRIMETHOPRIM
     Indication: BRONCHITIS
     Dosage: ?          QUANTITY:800-160MG;OTHER FREQUENCY:EVERY 12 HRS;?
     Route: 048
     Dates: start: 20180913, end: 20180914

REACTIONS (5)
  - Tachyphrenia [None]
  - Rash macular [None]
  - Anger [None]
  - Insomnia [None]
  - Aggression [None]

NARRATIVE: CASE EVENT DATE: 20180914
